FAERS Safety Report 8196363-4 (Version None)
Quarter: 2012Q1

REPORT INFORMATION
  Report Type: 
  Country: None (occurrence: None)
  Receive Date: 20120309
  Receipt Date: 20120307
  Transmission Date: 20120608
  Serious: No
  Sender: FDA-Public Use
  Company Number: US-PFIZER INC-2012061504

PATIENT
  Sex: Female
  Weight: 129 kg

DRUGS (2)
  1. TYLENOL [Concomitant]
     Indication: ARTHRITIS
     Dosage: UNK
  2. CELEBREX [Suspect]
     Indication: ARTHRITIS
     Dosage: 200 MG, 1X/DAY
     Route: 048
     Dates: start: 20100101, end: 20120201

REACTIONS (1)
  - PAIN [None]
